FAERS Safety Report 8005985-2 (Version None)
Quarter: 2011Q4

REPORT INFORMATION
  Report Type: 
  Country: None (occurrence: None)
  Receive Date: 20111226
  Receipt Date: 20111215
  Transmission Date: 20120403
  Serious: Yes (Other)
  Sender: FDA-Public Use
  Company Number: AU-BRISTOL-MYERS SQUIBB COMPANY-16296519

PATIENT

DRUGS (1)
  1. ORENCIA [Suspect]

REACTIONS (2)
  - HEPATIC CIRRHOSIS [None]
  - PYODERMA GANGRENOSUM [None]
